FAERS Safety Report 8814630 (Version 1)
Quarter: 2012Q4

REPORT INFORMATION
  Report Type: 
  Country: US (occurrence: US)
  Receive Date: 20120928
  Receipt Date: 20120928
  Transmission Date: 20130627
  Serious: Yes (Death, Hospitalization)
  Sender: FDA-Public Use
  Company Number: US-ACTELION-A-US2012-71432

PATIENT
  Age: 82 Year
  Sex: Female

DRUGS (11)
  1. TRACLEER [Suspect]
     Indication: PULMONARY ARTERIAL HYPERTENSION
     Route: 048
  2. MORPHINE SULFATE [Concomitant]
  3. ATROPINE [Concomitant]
  4. LORAZEPAM [Concomitant]
  5. HALOPERIDOL [Concomitant]
  6. TEMAZEPAM [Concomitant]
  7. DUONEB [Concomitant]
  8. LORTAB [Concomitant]
  9. DIGOXIN [Concomitant]
  10. METHOTREXATE [Concomitant]
  11. DILTIAZEM [Concomitant]

REACTIONS (1)
  - Death [Fatal]
